FAERS Safety Report 5425513-5 (Version None)
Quarter: 2007Q3

REPORT INFORMATION
  Report Type: 
  Country: None (occurrence: None)
  Receive Date: 20070731
  Receipt Date: 20070405
  Transmission Date: 20080115
  Serious: No
  Sender: FDA-Public Use
  Company Number: US200704001653

PATIENT
  Age: 67 Year
  Sex: Male

DRUGS (18)
  1. BYETTA [Suspect]
     Indication: DIABETES MELLITUS
     Dosage: 5 UG, 2/D; SUBCUTANEOUS 20 UG, 2/D SUBCUTANEOUS
     Route: 058
     Dates: start: 20070302, end: 20070322
  2. BYETTA [Suspect]
     Indication: DIABETES MELLITUS
     Dosage: 5 UG, 2/D; SUBCUTANEOUS 20 UG, 2/D SUBCUTANEOUS
     Route: 058
     Dates: start: 20070322
  3. EXENATIDE PEN (EXENATIDE PEN) [Concomitant]
  4. NOVOLOG [Concomitant]
  5. LANTUS [Concomitant]
  6. ASPIRIN [Concomitant]
  7. ZOCOR [Concomitant]
  8. ALTACE [Concomitant]
  9. FUROSEMIDE [Concomitant]
  10. DOXAZOSIN (DOXAZOSIN) [Concomitant]
  11. ALLOPURINOL [Concomitant]
  12. COLCHICUM JTL LIQ [Concomitant]
  13. TOPROL-XL [Concomitant]
  14. OMEGA 3 FISH OIL (FISH OIL) [Concomitant]
  15. DIGOXIN [Concomitant]
  16. FOSAMAX [Concomitant]
  17. CALCIUM WITH VITAMIN D (CALCIUM PHOSPHATE, CALCIUM SODIUM LACTATE, ERG [Concomitant]
  18. COUMADIN [Concomitant]

REACTIONS (2)
  - BLOOD GLUCOSE INCREASED [None]
  - OVERDOSE [None]
